FAERS Safety Report 19209259 (Version 1)
Quarter: 2021Q2

REPORT INFORMATION
  Report Type: Spontaneous
  Country: US (occurrence: US)
  Receive Date: 20210503
  Receipt Date: 20210503
  Transmission Date: 20210717
  Serious: No
  Sender: FDA-Public Use
  Company Number: US-UPSHER-SMITH LABORATORIES, LLC-2021USL00303

PATIENT
  Age: 45 Year
  Sex: Female

DRUGS (1)
  1. TOSYMRA [Suspect]
     Active Substance: SUMATRIPTAN
     Indication: HEADACHE
     Dosage: 10 ?G ONCE; DOSE MAY BE REPEATED ONCE AFTER 1 HOUR
     Route: 045

REACTIONS (1)
  - Urticaria [Recovered/Resolved]
